FAERS Safety Report 24191230 (Version 2)
Quarter: 2024Q3

REPORT INFORMATION
  Report Type: Spontaneous
  Country: PT (occurrence: PT)
  Receive Date: 20240808
  Receipt Date: 20240823
  Transmission Date: 20241016
  Serious: Yes (Life-Threatening, Hospitalization)
  Sender: TEVA
  Company Number: PT-TEVA-VS-3229775

PATIENT
  Age: 47 Year
  Sex: Female

DRUGS (4)
  1. LEVOCETIRIZINE [Suspect]
     Active Substance: LEVOCETIRIZINE
     Indication: Toxic epidermal necrolysis
     Route: 065
  2. ACEMETACIN [Suspect]
     Active Substance: ACEMETACIN
     Indication: Bone pain
     Route: 065
  3. DEFLAZACORT [Suspect]
     Active Substance: DEFLAZACORT
     Indication: Toxic epidermal necrolysis
     Route: 065
  4. ETORICOXIB [Suspect]
     Active Substance: ETORICOXIB
     Indication: Bone pain
     Route: 065

REACTIONS (4)
  - Toxic epidermal necrolysis [Unknown]
  - Distributive shock [Unknown]
  - Drug ineffective [Unknown]
  - Multiple organ dysfunction syndrome [Unknown]
